FAERS Safety Report 21026151 (Version 1)
Quarter: 2022Q2

REPORT INFORMATION
  Report Type: Spontaneous
  Country: RU (occurrence: None)
  Receive Date: 20220630
  Receipt Date: 20220630
  Transmission Date: 20220721
  Serious: Yes (Other)
  Sender: FDA-Public Use
  Company Number: RU-ROCHE-3124331

PATIENT
  Age: 61 Year
  Sex: Male

DRUGS (8)
  1. ATEZOLIZUMAB [Suspect]
     Active Substance: ATEZOLIZUMAB
     Indication: Lung neoplasm malignant
     Dosage: 4 CYCLES CHEMOTHERAPY + IMMUNOTHERAPY
     Route: 041
     Dates: start: 20210412, end: 20210616
  2. ATEZOLIZUMAB [Suspect]
     Active Substance: ATEZOLIZUMAB
     Dosage: MAINTENANCE THERAPY
     Route: 041
     Dates: start: 202107
  3. ATEZOLIZUMAB [Suspect]
     Active Substance: ATEZOLIZUMAB
     Dosage: 14TH CYCLE OF TARGETED THERAPY + IMMUNOTHERAPY
     Route: 041
     Dates: start: 20220114
  4. BEVACIZUMAB [Suspect]
     Active Substance: BEVACIZUMAB
     Indication: Lung neoplasm malignant
     Dosage: 4 CYCLES CHEMOTHERAPY + IMMUNOTHERAPY
     Route: 042
     Dates: start: 20210412, end: 20210616
  5. BEVACIZUMAB [Suspect]
     Active Substance: BEVACIZUMAB
     Dosage: MAINTENANCE THERAPY
     Route: 042
     Dates: start: 202107
  6. BEVACIZUMAB [Suspect]
     Active Substance: BEVACIZUMAB
     Dosage: 14TH CYCLE OF TARGETED THERAPY + IMMUNOTHERAPY
     Route: 042
     Dates: start: 20220114
  7. PACLITAXEL [Suspect]
     Active Substance: PACLITAXEL
     Indication: Lung neoplasm malignant
     Dosage: 4 CYCLES CHEMOTHERAPY + IMMUNOTHERAPY
     Route: 042
     Dates: start: 20210412, end: 20210616
  8. CARBOPLATIN [Suspect]
     Active Substance: CARBOPLATIN
     Indication: Lung neoplasm malignant
     Dosage: AUC 6?4 CYCLES CHEMOTHERAPY + IMMUNOTHERAPY
     Route: 042
     Dates: start: 20210412, end: 20210616

REACTIONS (1)
  - Neuropathy peripheral [Unknown]
